FAERS Safety Report 16177600 (Version 1)
Quarter: 2019Q2

REPORT INFORMATION
  Report Type: Spontaneous
  Country: US (occurrence: US)
  Receive Date: 20190410
  Receipt Date: 20190410
  Transmission Date: 20190711
  Serious: Yes (Hospitalization)
  Sender: FDA-Public Use
  Company Number: US-AMGEN-USASP2019053922

PATIENT
  Age: 14 Year
  Sex: Female

DRUGS (4)
  1. NADOLOL. [Concomitant]
     Active Substance: NADOLOL
     Indication: ATRIAL TACHYCARDIA
     Dosage: UNK
  2. IVABRADINE [Suspect]
     Active Substance: IVABRADINE
     Indication: ATRIAL TACHYCARDIA
     Dosage: 1.25 MILLIGRAM, BID
     Route: 048
  3. IVABRADINE [Suspect]
     Active Substance: IVABRADINE
     Dosage: 2.5 MILLIGRAM, BID (0.17 MG/KG/DAY)
     Route: 048
  4. IVABRADINE [Suspect]
     Active Substance: IVABRADINE
     Dosage: 5 MG IN THE AM AND 2.5 MG IN THE PM, BID (0.25 MG/KG/DAY)
     Route: 048

REACTIONS (2)
  - Atrial tachycardia [Unknown]
  - Off label use [Unknown]
